FAERS Safety Report 8138325-9 (Version None)
Quarter: 2012Q1

REPORT INFORMATION
  Report Type: 
  Country: None (occurrence: None)
  Receive Date: 20120213
  Receipt Date: 20120127
  Transmission Date: 20120608
  Serious: Yes (Hospitalization)
  Sender: FDA-Public Use
  Company Number: DSA_47936_2011

PATIENT
  Age: 50 Year
  Sex: Male

DRUGS (14)
  1. RILMENIDINE (RILMENIDINE) [Suspect]
     Indication: PRODUCT USED FOR UNKNOWN INDICATION
     Dosage: (1 MG QD ORAL)
     Route: 048
     Dates: end: 20110809
  2. KERLONE [Suspect]
     Indication: PRODUCT USED FOR UNKNOWN INDICATION
     Dosage: (20 MG QD ORAL) ; (DF)
     Route: 048
     Dates: end: 20110809
  3. KERLONE [Suspect]
     Indication: PRODUCT USED FOR UNKNOWN INDICATION
     Dosage: (20 MG QD ORAL) ; (DF)
     Route: 048
     Dates: start: 20110820
  4. TACROLIMUS [Concomitant]
  5. ATORVASTATIN CALCIUM [Suspect]
     Indication: PRODUCT USED FOR UNKNOWN INDICATION
     Dosage: (20 MG QD ORAL)
     Route: 048
     Dates: end: 20110809
  6. ALLOPURINOL [Suspect]
     Indication: PRODUCT USED FOR UNKNOWN INDICATION
     Dosage: (300 MG QD ORAL)
     Route: 048
     Dates: end: 20110809
  7. LERCANIDIPINE [Suspect]
     Indication: PRODUCT USED FOR UNKNOWN INDICATION
     Dosage: (20 MG QD ORAL)
     Route: 048
     Dates: end: 20110809
  8. NOVONORM (NOVO-NORM-RIPAGLINIDE) (NOT SPECIFIED) [Suspect]
     Indication: PRODUCT USED FOR UNKNOWN INDICATION
     Dosage: (3 MG TID ORAL) ; (DF ORAL)
     Route: 048
     Dates: end: 20110809
  9. NOVONORM (NOVO-NORM-RIPAGLINIDE) (NOT SPECIFIED) [Suspect]
     Indication: PRODUCT USED FOR UNKNOWN INDICATION
     Dosage: (3 MG TID ORAL) ; (DF ORAL)
     Route: 048
     Dates: start: 20110819
  10. CELLCEPT [Concomitant]
  11. SITAGLIPTIN PHOSPHATE [Suspect]
     Indication: PRODUCT USED FOR UNKNOWN INDICATION
     Dosage: (50 MG QD ORAL)
     Route: 048
     Dates: end: 20110809
  12. PREDNISONE TAB [Concomitant]
  13. ENALAPRIL MALEATE AND HYDROCHLOROTHIAZIDE [Suspect]
     Indication: PRODUCT USED FOR UNKNOWN INDICATION
     Dosage: (ONCE DAILY ORAL)
     Route: 048
     Dates: end: 20110809
  14. OXYCODONE HCL [Suspect]
     Indication: BACK PAIN
     Dosage: (10 MG, FREQUENCY UNKNOWN ORAL)
     Route: 048
     Dates: start: 20110713, end: 20110809

REACTIONS (6)
  - DEHYDRATION [None]
  - LIPASE INCREASED [None]
  - AMYLASE INCREASED [None]
  - RENAL FAILURE [None]
  - INTESTINAL OBSTRUCTION [None]
  - CONDITION AGGRAVATED [None]
